FAERS Safety Report 17991390 (Version 3)
Quarter: 2020Q3

REPORT INFORMATION
  Report Type: Report from Study
  Country: US (occurrence: US)
  Receive Date: 20200707
  Receipt Date: 20200716
  Transmission Date: 20201103
  Serious: Yes (Life-Threatening, Other)
  Sender: FDA-Public Use
  Company Number: US-PFIZER INC-2020150308

PATIENT
  Age: 33 Year
  Sex: Male
  Weight: 115 kg

DRUGS (14)
  1. DIAZEPAM. [Concomitant]
     Active Substance: DIAZEPAM
     Dosage: UNK
  2. OXYCODONE [Concomitant]
     Active Substance: OXYCODONE
     Dosage: UNK
  3. VINCRISTINE SULFATE. [Suspect]
     Active Substance: VINCRISTINE SULFATE
     Indication: ALVEOLAR RHABDOMYOSARCOMA
     Dosage: 1.5 MG/M2, CYCLIC
     Route: 042
     Dates: start: 20190808, end: 20191021
  4. CYCLOPHOSPHAMIDE. [Suspect]
     Active Substance: CYCLOPHOSPHAMIDE
     Indication: ALVEOLAR RHABDOMYOSARCOMA
     Dosage: 1200 MG/M2, CYCLIC
     Route: 042
     Dates: start: 20190808, end: 20200217
  5. LYRICA [Concomitant]
     Active Substance: PREGABALIN
     Dosage: UNK
  6. OXYCONTIN [Concomitant]
     Active Substance: OXYCODONE HYDROCHLORIDE
     Dosage: UNK
  7. IRINOTECAN HCL [Suspect]
     Active Substance: IRINOTECAN HYDROCHLORIDE
     Indication: ALVEOLAR RHABDOMYOSARCOMA
     Dosage: 50 MG/M2, CYCLIC
     Route: 042
     Dates: start: 20190826, end: 20200313
  8. DACTINOMYCIN [Suspect]
     Active Substance: DACTINOMYCIN
     Indication: ALVEOLAR RHABDOMYOSARCOMA
     Dosage: 0.05 MG/KG, CYCLIC
     Route: 042
     Dates: start: 20190808, end: 20200217
  9. OLANZAPINE. [Concomitant]
     Active Substance: OLANZAPINE
     Dosage: UNK
  10. ZYPREXA [Concomitant]
     Active Substance: OLANZAPINE
     Dosage: UNK
  11. TEMSIROLIMUS. [Suspect]
     Active Substance: TEMSIROLIMUS
     Indication: ALVEOLAR RHABDOMYOSARCOMA
     Dosage: 15 MG/M2, CYCLIC
     Route: 042
     Dates: start: 20190808, end: 20200323
  12. DULOXETINE. [Concomitant]
     Active Substance: DULOXETINE
     Dosage: UNK
  13. LORAZEPAM. [Concomitant]
     Active Substance: LORAZEPAM
     Dosage: UNK
  14. ZOFRAN [Concomitant]
     Active Substance: ONDANSETRON HYDROCHLORIDE
     Dosage: UNK

REACTIONS (2)
  - Respiratory failure [Unknown]
  - Sepsis [Unknown]

NARRATIVE: CASE EVENT DATE: 20200403
